FAERS Safety Report 6439908-4 (Version None)
Quarter: 2009Q4

REPORT INFORMATION
  Report Type: 
  Country: None (occurrence: None)
  Receive Date: 20091112
  Receipt Date: 20091112
  Transmission Date: 20100525
  Serious: No
  Sender: FDA-Public Use
  Company Number: None

PATIENT
  Age: 67 Year
  Sex: Male
  Weight: 74.8435 kg

DRUGS (1)
  1. NASONEX [Suspect]

REACTIONS (2)
  - EPISTAXIS [None]
  - PRODUCT QUALITY ISSUE [None]
